FAERS Safety Report 9236490 (Version 1)
Quarter: 2013Q2

REPORT INFORMATION
  Report Type: Spontaneous
  Country: US (occurrence: US)
  Receive Date: 20130417
  Receipt Date: 20130417
  Transmission Date: 20140414
  Serious: Yes (Death)
  Sender: FDA-Public Use
  Company Number: US-TEVA-397753USA

PATIENT
  Sex: Female
  Weight: 45.4 kg

DRUGS (1)
  1. FENTORA [Suspect]
     Indication: PANCREATIC CARCINOMA METASTATIC
     Route: 002

REACTIONS (1)
  - Pancreatic carcinoma metastatic [Fatal]
